FAERS Safety Report 15279136 (Version 1)
Quarter: 2018Q3

REPORT INFORMATION
  Report Type: Spontaneous
  Country: KR (occurrence: KR)
  Receive Date: 20180815
  Receipt Date: 20180815
  Transmission Date: 20181010
  Serious: Yes (Other)
  Sender: FDA-Public Use
  Company Number: KR-ASTELLAS-2018US036335

PATIENT
  Sex: Male

DRUGS (1)
  1. BETMIGA [Suspect]
     Active Substance: MIRABEGRON
     Indication: HYPERTONIC BLADDER
     Route: 048
     Dates: start: 20180806, end: 20180808

REACTIONS (4)
  - Off label use [Recovered/Resolved]
  - Panic disorder [Unknown]
  - Arrhythmia [Unknown]
  - Syncope [Unknown]

NARRATIVE: CASE EVENT DATE: 20180806
